FAERS Safety Report 25538376 (Version 3)
Quarter: 2025Q4

REPORT INFORMATION
  Report Type: Report from Study
  Country: US (occurrence: US)
  Receive Date: 20250710
  Receipt Date: 20251216
  Transmission Date: 20260119
  Serious: Yes (Other)
  Sender: ALEXION PHARMACEUTICALS
  Company Number: US-AstraZeneca-CH-00905290A

PATIENT
  Sex: Male

DRUGS (1)
  1. RAVULIZUMAB [Suspect]
     Active Substance: RAVULIZUMAB
     Indication: Myasthenia gravis
     Dosage: UNK
     Route: 065

REACTIONS (4)
  - Neuropathy peripheral [Unknown]
  - Asthenia [Unknown]
  - Burning sensation [Not Recovered/Not Resolved]
  - Insomnia [Unknown]
